FAERS Safety Report 10047624 (Version 2)
Quarter: 2014Q3

REPORT INFORMATION
  Report Type: Spontaneous
  Country: FR (occurrence: None)
  Receive Date: 20140327
  Receipt Date: 20140701
  Transmission Date: 20150326
  Serious: Yes (Hospitalization, Other)
  Sender: FDA-Public Use
  Company Number: 2014000084

PATIENT
  Age: 54 Year
  Sex: Female

DRUGS (8)
  1. ACEON [Suspect]
     Active Substance: PERINDOPRIL ERBUMINE
     Indication: PRODUCT USED FOR UNKNOWN INDICATION
     Dosage: 4 MG, QD, ORAL
     Route: 048
     Dates: end: 20140203
  2. LORMETAZEPAM (LORMETAZEPAM) [Concomitant]
     Active Substance: LORMETAZEPAM
  3. RISPERIDONE (RISPERIDONE) [Concomitant]
     Active Substance: RISPERIDONE
  4. CLORAZEPATE DIPOTASSIUM (CLORAZEPATE DIPOTASSIUM) [Concomitant]
  5. SERETIDE [Concomitant]
     Active Substance: FLUTICASONE FUROATE\SALMETEROL XINAFOATE
  6. TROPATEPINE (TROPATEPINE) [Concomitant]
  7. PRAXITEN PLIVA (OXAZEPAM) (OXAZEPAM) [Concomitant]
     Active Substance: OXAZEPAM
  8. ALIMEMAZINE (ALIMEMAZINE) [Concomitant]

REACTIONS (7)
  - Renal failure acute [None]
  - Diarrhoea haemorrhagic [None]
  - Pyrexia [None]
  - Nausea [None]
  - Dehydration [None]
  - Hyponatraemia [None]
  - Hypokalaemia [None]

NARRATIVE: CASE EVENT DATE: 20140130
